FAERS Safety Report 4603404-7 (Version None)
Quarter: 2005Q1

REPORT INFORMATION
  Report Type: 
  Country: None (occurrence: None)
  Receive Date: 20050309
  Receipt Date: 20041020
  Transmission Date: 20050727
  Serious: Yes (Death, Life-Threatening, Hospitalization)
  Sender: FDA-Public Use
  Company Number: DE-MERCK-0410DEU00584

PATIENT
  Age: 81 Year
  Sex: Female

DRUGS (6)
  1. VIOXX [Suspect]
     Indication: PAIN IN EXTREMITY
     Route: 048
     Dates: start: 20030520, end: 20030520
  2. VIOXX [Suspect]
     Indication: MUSCULOSKELETAL PAIN
     Route: 048
     Dates: start: 20030520, end: 20030520
  3. RAMIPRIL [Concomitant]
     Route: 048
     Dates: end: 20030521
  4. PANTOPRAZOLE SODIUM [Concomitant]
     Route: 065
     Dates: end: 20030521
  5. FUROSEMIDE SODIUM [Concomitant]
     Route: 065
     Dates: end: 20030521
  6. XIPAMIDE [Concomitant]
     Route: 048
     Dates: end: 20030521

REACTIONS (6)
  - CEREBROVASCULAR ACCIDENT [None]
  - CIRCULATORY COLLAPSE [None]
  - COMA [None]
  - FALL [None]
  - LOSS OF CONSCIOUSNESS [None]
  - VENTRICULAR FIBRILLATION [None]
